FAERS Safety Report 11176448 (Version 2)
Quarter: 2015Q2

REPORT INFORMATION
  Report Type: Spontaneous
  Country: LV (occurrence: LV)
  Receive Date: 20150610
  Receipt Date: 20150617
  Transmission Date: 20150821
  Serious: Yes (Death)
  Sender: FDA-Public Use
  Company Number: LV-ALEXION PHARMACEUTICALS INC-A201502039

PATIENT

DRUGS (2)
  1. SOLIRIS [Suspect]
     Active Substance: ECULIZUMAB
     Indication: OFF LABEL USE
     Dosage: 600 MG, UNK
     Route: 042
     Dates: start: 20141119, end: 20141217
  2. SOLIRIS [Suspect]
     Active Substance: ECULIZUMAB
     Indication: GLOMERULONEPHRITIS MEMBRANOPROLIFERATIVE
     Dosage: 900 MG, UNK
     Route: 042
     Dates: start: 20141015, end: 20141022

REACTIONS (2)
  - Off label use [Unknown]
  - Cardiovascular disorder [Fatal]

NARRATIVE: CASE EVENT DATE: 20141015
